FAERS Safety Report 6787566-1 (Version None)
Quarter: 2010Q2

REPORT INFORMATION
  Report Type: 
  Country: None (occurrence: None)
  Receive Date: 20100623
  Receipt Date: 20100622
  Transmission Date: 20101027
  Serious: Yes (Other)
  Sender: FDA-Public Use
  Company Number: US-MERCK-1001USA01364

PATIENT
  Age: 73 Year
  Sex: Female

DRUGS (2)
  1. FOSAMAX [Suspect]
     Indication: BONE DENSITY DECREASED
     Route: 048
     Dates: start: 20020201, end: 20090301
  2. LOVASTATIN [Concomitant]
     Indication: BLOOD CHOLESTEROL INCREASED
     Route: 065
     Dates: start: 20010101

REACTIONS (12)
  - ANXIETY [None]
  - BONE DISORDER [None]
  - BUNION [None]
  - DEPRESSION [None]
  - MALIGNANT MELANOMA [None]
  - MOUTH ULCERATION [None]
  - OSTEOPOROSIS [None]
  - OVERDOSE [None]
  - PAIN IN JAW [None]
  - STOMATITIS [None]
  - SWELLING [None]
  - TOOTH FRACTURE [None]
